FAERS Safety Report 12551773 (Version 1)
Quarter: 2016Q3

REPORT INFORMATION
  Report Type: Spontaneous
  Country: US (occurrence: None)
  Receive Date: 20160712
  Receipt Date: 20160712
  Transmission Date: 20161109
  Serious: Yes (Disabling)
  Sender: FDA-Public Use
  Company Number: None

PATIENT
  Age: 51 Year
  Sex: Female
  Weight: 65.77 kg

DRUGS (7)
  1. ZYRTEC [Concomitant]
     Active Substance: CETIRIZINE HYDROCHLORIDE
  2. CORTICOSTEROID [Suspect]
     Active Substance: CORTICOSTEROID NOS
     Indication: INTERVERTEBRAL DISC PROTRUSION
     Dates: start: 20160706, end: 20160706
  3. SYNTRHROID [Concomitant]
  4. PROVIGIL [Concomitant]
     Active Substance: MODAFINIL
  5. JANUMET [Concomitant]
     Active Substance: METFORMIN HYDROCHLORIDE\SITAGLIPTIN PHOSPHATE
  6. TRAMADOL. [Concomitant]
     Active Substance: TRAMADOL
  7. VYRORIN [Concomitant]

REACTIONS (5)
  - Injection site pain [None]
  - Pain in extremity [None]
  - Pain [None]
  - Musculoskeletal stiffness [None]
  - Gait disturbance [None]

NARRATIVE: CASE EVENT DATE: 20160706
